FAERS Safety Report 11866153 (Version 1)
Quarter: 2015Q4

REPORT INFORMATION
  Report Type: Report from Study
  Country: US (occurrence: US)
  Receive Date: 20151223
  Receipt Date: 20151223
  Transmission Date: 20160305
  Serious: No
  Sender: FDA-Public Use
  Company Number: US-EXELIXIS-CABO-15005754

PATIENT
  Age: 73 Year
  Sex: Female

DRUGS (4)
  1. DIZIDE [Concomitant]
  2. COMETRIQ [Suspect]
     Active Substance: CABOZANTINIB S-MALATE
     Indication: LUNG NEOPLASM MALIGNANT
     Dosage: 140 MG, QD
     Route: 048
     Dates: start: 20151016, end: 20151113
  3. COMETRIQ [Suspect]
     Active Substance: CABOZANTINIB S-MALATE
     Dosage: 100 MG, QD
     Route: 048
     Dates: start: 20151201
  4. METOPROLOL [Concomitant]
     Active Substance: METOPROLOL

REACTIONS (10)
  - Palmar-plantar erythrodysaesthesia syndrome [Unknown]
  - Hepatic enzyme increased [Unknown]
  - Off label use [Unknown]
  - Erythema [Unknown]
  - Pain [Recovering/Resolving]
  - Discomfort [Unknown]
  - Blister [Recovered/Resolved]
  - Alopecia [Not Recovered/Not Resolved]
  - Dermatitis acneiform [Unknown]
  - Weight decreased [Unknown]

NARRATIVE: CASE EVENT DATE: 2015
